FAERS Safety Report 24577335 (Version 1)
Quarter: 2024Q4

REPORT INFORMATION
  Report Type: Spontaneous
  Country: US (occurrence: US)
  Receive Date: 20241104
  Receipt Date: 20241104
  Transmission Date: 20250114
  Serious: No
  Sender: PERRIGO
  Company Number: US-PERRIGO-24US002156

PATIENT
  Age: 80 Year
  Sex: Male
  Weight: 105.67 kg

DRUGS (18)
  1. POLYETHYLENE GLYCOL 3350 [Suspect]
     Active Substance: POLYETHYLENE GLYCOL 3350
     Indication: Constipation
     Dosage: 51 TO 68 G, QD
     Route: 048
     Dates: end: 20240228
  2. DULCOLAX STOOL SOFTENER [Concomitant]
     Active Substance: DOCUSATE SODIUM
     Indication: Constipation
     Dosage: UNK
     Route: 065
  3. ATORVASTATIN [Concomitant]
     Active Substance: ATORVASTATIN
     Indication: Blood cholesterol increased
     Dosage: 80 MG, UNK
     Route: 065
     Dates: start: 20171029
  4. ATORVASTATIN [Concomitant]
     Active Substance: ATORVASTATIN
     Indication: Stent placement
  5. BENZONATATE [Concomitant]
     Active Substance: BENZONATATE
     Indication: Cough
     Dosage: 200 MG, PRN
     Route: 065
  6. CHLORTHALIDONE [Concomitant]
     Active Substance: CHLORTHALIDONE
     Indication: Hypertension
     Dosage: 25 MG, UNK
     Route: 065
     Dates: start: 2019
  7. DULOXETINE [Concomitant]
     Active Substance: DULOXETINE
     Indication: Anxiety
     Dosage: 30 MG, PRN
     Route: 065
     Dates: start: 202309
  8. DULOXETINE [Concomitant]
     Active Substance: DULOXETINE
     Dosage: 60 MG, UNK
     Route: 065
     Dates: start: 202309
  9. CITALOPRAM [Concomitant]
     Active Substance: CITALOPRAM
     Indication: Anxiety
     Dosage: UNK
     Route: 065
     Dates: end: 202309
  10. EZETIMIBE [Concomitant]
     Active Substance: EZETIMIBE
     Indication: Prophylaxis
     Dosage: 10 MG, UNK
     Route: 065
     Dates: start: 2017
  11. EZETIMIBE [Concomitant]
     Active Substance: EZETIMIBE
     Indication: Blood cholesterol increased
  12. IPRATROPIUM BROMIDE [Concomitant]
     Active Substance: IPRATROPIUM BROMIDE
     Indication: Nasal congestion
     Dosage: UNK, PRN
     Route: 065
     Dates: start: 202309
  13. IPRATROPIUM BROMIDE [Concomitant]
     Active Substance: IPRATROPIUM BROMIDE
     Indication: Rhinorrhoea
  14. LEVOTHYROXINE [Concomitant]
     Active Substance: LEVOTHYROXINE
     Indication: Thyroid disorder
     Dosage: 112 MCG, UNK
     Dates: start: 2014
  15. LORAZEPAM [Concomitant]
     Active Substance: LORAZEPAM
     Indication: Bruxism
     Dosage: 0.5 MG, QHS
     Route: 065
     Dates: start: 2016
  16. METFORMIN [Concomitant]
     Active Substance: METFORMIN HYDROCHLORIDE
     Indication: Diabetes mellitus
     Dosage: 500 MG, BID
     Route: 065
     Dates: start: 2020
  17. OLMESARTAN [Concomitant]
     Active Substance: OLMESARTAN
     Indication: Hypertension
     Dosage: UNK
     Route: 065
     Dates: start: 202302
  18. REPATHA [Concomitant]
     Active Substance: EVOLOCUMAB
     Indication: Blood cholesterol increased
     Dosage: 140 MG, EVERY 2 TO 3 WEEKS
     Route: 065
     Dates: start: 2021

REACTIONS (4)
  - Dizziness [Not Recovered/Not Resolved]
  - Asthenia [Not Recovered/Not Resolved]
  - Overdose [Unknown]
  - Incorrect product administration duration [Unknown]

NARRATIVE: CASE EVENT DATE: 20230701
